FAERS Safety Report 7845778-X (Version None)
Quarter: 2011Q4

REPORT INFORMATION
  Report Type: 
  Country: None (occurrence: None)
  Receive Date: 20111025
  Receipt Date: 20111012
  Transmission Date: 20120403
  Serious: Yes (Other)
  Sender: FDA-Public Use
  Company Number: US-ROCHE-746574

PATIENT
  Sex: Male
  Weight: 103.9 kg

DRUGS (11)
  1. SYNTHROID [Concomitant]
  2. SIMPLY SLEEP [Concomitant]
     Dosage: FREQUENCY: AS NECESSARY (PRN)
  3. ALEVE [Concomitant]
  4. ZETIA [Concomitant]
  5. MULTI-VITAMIN [Concomitant]
  6. LEVOTHYROXINE SODIUM [Concomitant]
  7. VITAMIN D [Concomitant]
  8. VEMURAFENIB [Suspect]
     Indication: METASTATIC MALIGNANT MELANOMA
     Dosage: LAST DOSE: 12 OCT 2011, DOSAGE FORM: 1920 MG
     Route: 048
  9. NEURONTIN [Concomitant]
  10. AMLODIPINE BESYLATE [Concomitant]
  11. IBUPROFEN [Concomitant]
     Dosage: FREQUENCY: AS NECESSARY (PRN)

REACTIONS (2)
  - SQUAMOUS CELL CARCINOMA OF SKIN [None]
  - PROSTATE CANCER [None]
